FAERS Safety Report 14535217 (Version 19)
Quarter: 2019Q1

REPORT INFORMATION
  Report Type: Spontaneous
  Country: CA (occurrence: CA)
  Receive Date: 20180215
  Receipt Date: 20190328
  Transmission Date: 20190417
  Serious: Yes (Other)
  Sender: FDA-Public Use
  Company Number: CA-CELLTRION INC.-2016CA013844

PATIENT

DRUGS (18)
  1. INFLECTRA [Suspect]
     Active Substance: INFLIXIMAB-DYYB
     Indication: RHEUMATOID ARTHRITIS
     Dosage: 200 MG, 0, 2, 6 WEEKS THEN EVERY 8 WEEKS FOR 12 MONTHS
     Route: 042
     Dates: start: 20160721, end: 20160901
  2. INFLECTRA [Suspect]
     Active Substance: INFLIXIMAB-DYYB
     Dosage: 400 MG, UNK
     Route: 042
     Dates: start: 20171005, end: 20171005
  3. INFLECTRA [Suspect]
     Active Substance: INFLIXIMAB-DYYB
     Dosage: 400 MG, EVERY 6 WEEKS
     Route: 042
     Dates: start: 20180618
  4. METHOTREXATE. [Concomitant]
     Active Substance: METHOTREXATE
     Dosage: 0.8 ML, 1/WEEK
     Route: 058
  5. INFLECTRA [Suspect]
     Active Substance: INFLIXIMAB-DYYB
     Dosage: 400 MG, EVERY 6 WEEKS
     Route: 042
     Dates: start: 20180829
  6. TRAZODONE [Concomitant]
     Active Substance: TRAZODONE HYDROCHLORIDE
     Indication: ANXIETY
  7. VENLAFAXINE [Concomitant]
     Active Substance: VENLAFAXINE HYDROCHLORIDE
     Indication: DEPRESSION
     Dosage: 150 MG, DAILY
     Route: 065
  8. INFLECTRA [Suspect]
     Active Substance: INFLIXIMAB-DYYB
     Dosage: 400 MG, EVERY 6 WEEKS FOR 12 MONTHS
     Route: 042
  9. INFLECTRA [Suspect]
     Active Substance: INFLIXIMAB-DYYB
     Dosage: 400 MG, EVERY 6 WEEKS
     Route: 042
     Dates: start: 20180105, end: 20180105
  10. INFLECTRA [Suspect]
     Active Substance: INFLIXIMAB-DYYB
     Dosage: 400 MG, EVERY 6 WEEKS
     Route: 042
     Dates: start: 20180618
  11. INFLECTRA [Suspect]
     Active Substance: INFLIXIMAB-DYYB
     Dosage: 400 MG, EVERY 6 WEEKS
     Route: 042
     Dates: start: 20190313, end: 20190313
  12. INFLECTRA [Suspect]
     Active Substance: INFLIXIMAB-DYYB
     Dosage: 400 EVERY 6 WEEKS
     Route: 042
     Dates: start: 20161027
  13. INFLECTRA [Suspect]
     Active Substance: INFLIXIMAB-DYYB
     Dosage: 400 MG, EVERY 6 WEEKS
     Route: 042
     Dates: start: 20171123, end: 20171123
  14. TRAZODONE [Concomitant]
     Active Substance: TRAZODONE HYDROCHLORIDE
     Indication: DEPRESSION
     Dosage: 150 MG, DAILY
     Route: 065
  15. FOLIC ACID. [Concomitant]
     Active Substance: FOLIC ACID
     Dosage: 5 MG, DAILY DAILY (NOT THE DAYS BEFORE OR AFTER METHOTREXATE)
     Route: 065
  16. INFLECTRA [Suspect]
     Active Substance: INFLIXIMAB-DYYB
     Dosage: 400 MG, UNK
     Route: 042
     Dates: start: 20180405
  17. BUPROPION. [Concomitant]
     Active Substance: BUPROPION
     Indication: DEPRESSION
     Dosage: 300 MG, QD
     Route: 065
  18. SULFASALAZINE. [Concomitant]
     Active Substance: SULFASALAZINE
     Indication: FUNCTIONAL GASTROINTESTINAL DISORDER
     Dosage: 500 MG, 2X/DAY
     Route: 065

REACTIONS (26)
  - Bacterial infection [Not Recovered/Not Resolved]
  - Balance disorder [Unknown]
  - Hypersensitivity [Unknown]
  - Nasal congestion [Unknown]
  - Airway complication of anaesthesia [Recovering/Resolving]
  - Contusion [Unknown]
  - Malaise [Unknown]
  - Blood pressure increased [Unknown]
  - Influenza like illness [Recovering/Resolving]
  - Productive cough [Recovering/Resolving]
  - Vomiting [Recovering/Resolving]
  - White blood cell count decreased [Unknown]
  - Dermatitis psoriasiform [Unknown]
  - Contusion [Unknown]
  - Poor venous access [Unknown]
  - Ankle fracture [Unknown]
  - Fall [Unknown]
  - Rash [Not Recovered/Not Resolved]
  - Diarrhoea [Recovering/Resolving]
  - Rash pruritic [Not Recovered/Not Resolved]
  - Oxygen saturation decreased [Unknown]
  - Platelet count decreased [Unknown]
  - Drug ineffective [Unknown]
  - Nasopharyngitis [Recovering/Resolving]
  - Product use issue [Unknown]
  - Nodule [Unknown]

NARRATIVE: CASE EVENT DATE: 2016
